FAERS Safety Report 23977765 (Version 1)
Quarter: 2024Q2

REPORT INFORMATION
  Report Type: Report from Study
  Country: US (occurrence: None)
  Receive Date: 20240614
  Receipt Date: 20240614
  Transmission Date: 20240716
  Serious: Yes (Other)
  Sender: FDA-Public Use
  Company Number: 2024A133574

PATIENT
  Sex: Female

DRUGS (2)
  1. LYNPARZA [Suspect]
     Active Substance: OLAPARIB
     Indication: Genital neoplasm malignant female
     Route: 048
     Dates: start: 20220120
  2. LYNPARZA [Suspect]
     Active Substance: OLAPARIB
     Indication: Genital neoplasm malignant female
     Route: 048
     Dates: start: 20220315

REACTIONS (2)
  - Blood pressure increased [Unknown]
  - Headache [Unknown]
